FAERS Safety Report 5633103-4 (Version None)
Quarter: 2008Q1

REPORT INFORMATION
  Report Type: 
  Country: None (occurrence: None)
  Receive Date: 20080221
  Receipt Date: 20080212
  Transmission Date: 20080703
  Serious: Yes (Hospitalization)
  Sender: FDA-Public Use
  Company Number: FR-AVENTIS-200810559FR

PATIENT
  Age: 80 Year
  Sex: Male

DRUGS (5)
  1. OFLOCET                            /00731801/ [Suspect]
     Indication: URINARY TRACT INFECTION
  2. BACTRIM [Suspect]
     Indication: INFECTION
     Dates: end: 20071124
  3. TAVANIC [Suspect]
     Indication: INFECTION
     Dates: end: 20071122
  4. FLAGYL [Suspect]
     Indication: INFECTION
     Dates: start: 20071122, end: 20071124
  5. DALACINE [Suspect]
     Dates: start: 20071122, end: 20071124

REACTIONS (2)
  - RENAL FAILURE ACUTE [None]
  - VASCULAR PURPURA [None]
